FAERS Safety Report 8336196-9 (Version None)
Quarter: 2012Q2

REPORT INFORMATION
  Report Type: 
  Country: None (occurrence: None)
  Receive Date: 20120504
  Receipt Date: 20120426
  Transmission Date: 20120825
  Serious: Yes (Death)
  Sender: FDA-Public Use
  Company Number: US-CELGENEUS-163-21880-12050128

PATIENT
  Sex: Female

DRUGS (3)
  1. REVLIMID [Suspect]
     Indication: MULTIPLE MYELOMA
     Dosage: 5 MILLIGRAM
     Route: 048
     Dates: start: 20100801, end: 20101201
  2. METFORMIN HCL [Concomitant]
     Dosage: 500 MILLIGRAM
     Route: 065
  3. VITAMIN D [Concomitant]
     Dosage: 10000 IU (INTERNATIONAL UNIT)
     Route: 065

REACTIONS (1)
  - DEATH [None]
